FAERS Safety Report 5591814-3 (Version None)
Quarter: 2008Q1

REPORT INFORMATION
  Report Type: 
  Country: None (occurrence: None)
  Receive Date: 20080115
  Receipt Date: 20080103
  Transmission Date: 20080703
  Serious: Yes (Other)
  Sender: FDA-Public Use
  Company Number: B0361426A

PATIENT
  Age: 29 Year
  Sex: Female

DRUGS (6)
  1. PAROXETINE HYDROCHLORIDE [Suspect]
     Route: 065
     Dates: start: 20010109
  2. MIRTAZAPINE [Concomitant]
     Dates: start: 20030509
  3. CITALOPRAM [Concomitant]
     Dates: start: 20030613
  4. HYDROXYZINE [Concomitant]
  5. DIAZEPAM [Concomitant]
     Dates: start: 20010102, end: 20050722
  6. PROZAC [Concomitant]
     Dates: start: 19980121, end: 20010109

REACTIONS (10)
  - ABDOMINAL PAIN UPPER [None]
  - ADVERSE EVENT [None]
  - ANOREXIA [None]
  - ANXIETY [None]
  - DRUG WITHDRAWAL SYNDROME [None]
  - INFLUENZA LIKE ILLNESS [None]
  - LOSS OF CONSCIOUSNESS [None]
  - SENSORY DISTURBANCE [None]
  - SOCIAL AVOIDANT BEHAVIOUR [None]
  - TREMOR [None]
